FAERS Safety Report 4316244-3 (Version None)
Quarter: 2004Q1

REPORT INFORMATION
  Report Type: 
  Country: None (occurrence: None)
  Receive Date: 20040312
  Receipt Date: 20040213
  Transmission Date: 20041129
  Serious: Yes (Other)
  Sender: FDA-Public Use
  Company Number: JP-ROCHE-359533

PATIENT
  Age: 12 Year
  Sex: Female
  Weight: 36 kg

DRUGS (7)
  1. TAMIFLU [Suspect]
     Route: 048
     Dates: start: 20040124, end: 20040124
  2. CLARITHROMYCIN [Concomitant]
     Route: 048
     Dates: start: 20040123, end: 20040130
  3. MUCOSOLVAN L [Concomitant]
     Route: 048
     Dates: start: 20040123, end: 20040130
  4. ALESION [Concomitant]
     Route: 048
     Dates: start: 20040123, end: 20040130
  5. THEO-DUR [Concomitant]
     Route: 048
     Dates: start: 20040123, end: 20040130
  6. MEPTIN MINI TABLETS [Concomitant]
     Route: 048
     Dates: start: 20040123, end: 20040130
  7. ACETAMINOPHEN [Concomitant]
     Indication: ANTIPYRESIS
     Route: 048
     Dates: start: 20040124

REACTIONS (6)
  - ANAPHYLACTIC REACTION [None]
  - DIZZINESS [None]
  - HYPOAESTHESIA [None]
  - NAUSEA [None]
  - PALLOR [None]
  - TREMOR [None]
